FAERS Safety Report 8387095-8 (Version None)
Quarter: 2012Q1

REPORT INFORMATION
  Report Type: 
  Country: None (occurrence: None)
  Receive Date: 20120323
  Receipt Date: 20110714
  Transmission Date: 20120608
  Serious: Yes (Hospitalization)
  Sender: FDA-Public Use
  Company Number: 163-21880-11040252

PATIENT
  Age: 67 Year
  Sex: Male
  Weight: 75 kg

DRUGS (5)
  1. METOPROLOL TARTRATE [Concomitant]
  2. AMLODIPINE BESYLATE [Concomitant]
  3. LOW DOSE ASPIRIN (ACETYLSALICYLIC ACID) [Concomitant]
  4. REVLIMID [Suspect]
     Indication: MULTIPLE MYELOMA
     Dosage: 10 MG, DAILY FOR 21 DAYS, PO
     Route: 048
     Dates: start: 20100401
  5. ACYCLOVIR [Concomitant]

REACTIONS (2)
  - PNEUMONIA [None]
  - BRONCHITIS [None]
